FAERS Safety Report 8324483-X (Version None)
Quarter: 2012Q2

REPORT INFORMATION
  Report Type: 
  Country: None (occurrence: None)
  Receive Date: 20120430
  Receipt Date: 20120430
  Transmission Date: 20120825
  Serious: Yes (Hospitalization)
  Sender: FDA-Public Use
  Company Number: None

PATIENT
  Sex: Female
  Weight: 80.9 kg

DRUGS (1)
  1. ERBITUX [Suspect]
     Dosage: 782 MG

REACTIONS (4)
  - FLUSHING [None]
  - HYPERVENTILATION [None]
  - DYSPNOEA [None]
  - INFUSION RELATED REACTION [None]
